FAERS Safety Report 9330923 (Version 1)
Quarter: 2013Q2

REPORT INFORMATION
  Report Type: Spontaneous
  Country: IT (occurrence: IT)
  Receive Date: 20130605
  Receipt Date: 20130605
  Transmission Date: 20140414
  Serious: Yes (Hospitalization)
  Sender: FDA-Public Use
  Company Number: IT-PFIZER INC-2013167063

PATIENT
  Age: 20 Year
  Sex: Male

DRUGS (3)
  1. IBUPROFEN [Suspect]
     Indication: OROPHARYNGEAL PAIN
     Dosage: 400 MG, 1X/DAY
     Route: 048
     Dates: start: 20130206, end: 20130207
  2. KETOPROFEN LYSINE [Suspect]
     Indication: OROPHARYNGEAL PAIN
     Dosage: UNK
     Route: 048
     Dates: start: 20130205, end: 20130205
  3. BUTAMIRATE CITRATE [Suspect]
     Indication: OROPHARYNGEAL PAIN
     Dosage: 1 DF, 1X/DAY
     Route: 048
     Dates: start: 20130206, end: 20130207

REACTIONS (3)
  - Rash [Recovering/Resolving]
  - Rash erythematous [Unknown]
  - Skin lesion [Unknown]
